FAERS Safety Report 19740745 (Version 2)
Quarter: 2021Q3

REPORT INFORMATION
  Report Type: Report from Study
  Country: US (occurrence: US)
  Receive Date: 20210824
  Receipt Date: 20210831
  Transmission Date: 20211014
  Serious: Yes (Life-Threatening)
  Sender: FDA-Public Use
  Company Number: US-PFIZER INC-202101077236

PATIENT
  Age: 58 Year
  Sex: Male
  Weight: 53.52 kg

DRUGS (1)
  1. TALZENNA [Suspect]
     Active Substance: TALAZOPARIB TOSYLATE
     Dosage: 1 MG, MG/DAY
     Route: 048

REACTIONS (1)
  - Myocardial infarction [Recovered/Resolved]
